FAERS Safety Report 18104879 (Version 4)
Quarter: 2021Q1

REPORT INFORMATION
  Report Type: Report from Study
  Country: None (occurrence: FR)
  Receive Date: 20200804
  Receipt Date: 20210114
  Transmission Date: 20210419
  Serious: Yes (Hospitalization)
  Sender: FDA-Public Use
  Company Number: FR-ABBVIE-20K-056-3503757-00

PATIENT
  Age: 28 Year
  Sex: Male
  Weight: 73 kg

DRUGS (32)
  1. BETNESOL [Concomitant]
     Indication: COLITIS ULCERATIVE
     Route: 054
     Dates: start: 20170614, end: 201707
  2. SOLUPRED [Concomitant]
     Route: 048
     Dates: start: 20170424, end: 20170609
  3. STELARA [Concomitant]
     Active Substance: USTEKINUMAB
     Indication: COLITIS ULCERATIVE
     Route: 042
     Dates: start: 20180607, end: 20180607
  4. MESALAZINE [Concomitant]
     Active Substance: MESALAMINE
     Indication: COLITIS ULCERATIVE
     Route: 054
     Dates: start: 20190927, end: 201910
  5. PENTASA [Concomitant]
     Active Substance: MESALAMINE
     Indication: COLITIS ULCERATIVE
     Route: 048
     Dates: start: 201406, end: 201506
  6. TOPALGIC [Concomitant]
     Indication: PAIN
     Route: 048
     Dates: start: 20190926
  7. HYDROCORTISONE. [Concomitant]
     Active Substance: HYDROCORTISONE
     Route: 048
     Dates: start: 20190926, end: 20190929
  8. INORIAL [Concomitant]
     Active Substance: BILASTINE
     Indication: ASTHMA
     Route: 048
     Dates: start: 201903
  9. LOVENOX [Concomitant]
     Active Substance: ENOXAPARIN SODIUM
     Indication: THROMBOSIS PROPHYLAXIS
     Route: 058
     Dates: start: 20190924, end: 201910
  10. TRIMEBUTINE [Concomitant]
     Active Substance: TRIMEBUTINE
     Indication: PAIN
     Dosage: 3 TABLETS
     Route: 048
     Dates: start: 20200514
  11. ADALIMUMAB [Suspect]
     Active Substance: ADALIMUMAB
     Indication: COLITIS ULCERATIVE
     Route: 058
     Dates: start: 20170502, end: 20170613
  12. PENTASA [Concomitant]
     Active Substance: MESALAMINE
     Route: 048
     Dates: start: 20170614, end: 201707
  13. HYDROCORTISONE. [Concomitant]
     Active Substance: HYDROCORTISONE
     Indication: COLITIS ULCERATIVE
     Route: 048
     Dates: start: 20190930, end: 20191002
  14. CALCIUM D3 [Concomitant]
     Active Substance: CALCIUM\CHOLECALCIFEROL
     Indication: HYPOCALCAEMIA
     Route: 048
     Dates: start: 201805
  15. PREDNISONE. [Concomitant]
     Active Substance: PREDNISONE
     Route: 048
     Dates: start: 201711, end: 201805
  16. VENTOLINE [Concomitant]
     Active Substance: ALBUTEROL
     Indication: ASTHMA
     Dates: start: 201903
  17. LOVENOX [Concomitant]
     Active Substance: ENOXAPARIN SODIUM
     Route: 058
     Dates: start: 20200706, end: 20200710
  18. CEFTRIAXONE. [Concomitant]
     Active Substance: CEFTRIAXONE
     Indication: COLITIS
     Route: 048
     Dates: start: 20190924, end: 20190930
  19. SPASFON [Concomitant]
     Indication: PAIN
     Route: 048
     Dates: start: 20200514
  20. ADALIMUMAB [Suspect]
     Active Substance: ADALIMUMAB
     Route: 058
  21. SOLUPRED [Concomitant]
     Indication: COLITIS ULCERATIVE
     Route: 048
     Dates: start: 20160621, end: 20161115
  22. SOLUPRED [Concomitant]
     Route: 048
     Dates: start: 20170118, end: 20170609
  23. PREDNISONE. [Concomitant]
     Active Substance: PREDNISONE
     Indication: COLITIS ULCERATIVE
     Route: 048
     Dates: start: 201707, end: 201710
  24. IMODIUM [Concomitant]
     Active Substance: LOPERAMIDE HYDROCHLORIDE
     Indication: COLITIS ULCERATIVE
     Route: 048
     Dates: start: 201711, end: 201808
  25. TIORFAN [Concomitant]
     Active Substance: RACECADOTRIL
     Indication: COLITIS ULCERATIVE
     Route: 048
     Dates: start: 20191008
  26. SIMPONI [Concomitant]
     Active Substance: GOLIMUMAB
     Indication: COLITIS ULCERATIVE
     Route: 058
     Dates: start: 20170628, end: 201707
  27. PREDNISONE. [Concomitant]
     Active Substance: PREDNISONE
     Route: 048
     Dates: start: 201805, end: 201909
  28. TOFACITINIB [Concomitant]
     Active Substance: TOFACITINIB
     Indication: COLITIS ULCERATIVE
     Route: 048
     Dates: start: 20190214, end: 20190314
  29. LOPERAMIDE [Concomitant]
     Active Substance: LOPERAMIDE
     Indication: COLITIS ULCERATIVE
     Route: 048
     Dates: start: 20191005, end: 202005
  30. DELURSAN [Concomitant]
     Active Substance: URSODIOL
     Indication: CHOLANGITIS SCLEROSING
     Route: 048
     Dates: start: 20161025, end: 2018
  31. FERINJECT [Concomitant]
     Active Substance: FERRIC CARBOXYMALTOSE
     Indication: IRON DEFICIENCY
     Route: 042
     Dates: start: 20180704, end: 20180704
  32. LOVENOX [Concomitant]
     Active Substance: ENOXAPARIN SODIUM
     Route: 058
     Dates: start: 20200514, end: 20200611

REACTIONS (6)
  - Inflammation [Recovered/Resolved]
  - Abdominal pain [Recovered/Resolved]
  - Colitis [Recovered/Resolved with Sequelae]
  - Colitis [Recovered/Resolved]
  - Hospitalisation [Recovered/Resolved]
  - Migraine with aura [Recovered/Resolved]

NARRATIVE: CASE EVENT DATE: 20190926
